FAERS Safety Report 7092049-8 (Version None)
Quarter: 2010Q4

REPORT INFORMATION
  Report Type: 
  Country: None (occurrence: None)
  Receive Date: 20101109
  Receipt Date: 20080812
  Transmission Date: 20110411
  Serious: No
  Sender: FDA-Public Use
  Company Number: US-KINGPHARMUSA00001-K200800961

PATIENT
  Sex: Female
  Weight: 66.667 kg

DRUGS (9)
  1. TAPAZOLE [Suspect]
     Indication: THYROID DISORDER
     Dosage: 10 MG, UNK
  2. MILK OF MAGNESIA TAB [Suspect]
     Indication: CONSTIPATION
     Dosage: 30 ML, QD
     Route: 048
     Dates: start: 20080101
  3. MILK OF MAGNESIA TAB [Suspect]
     Dosage: 30 ML, QD
     Route: 048
     Dates: start: 20080101
  4. PROPYLTHIOURACIL [Concomitant]
  5. LISINOPRIL [Concomitant]
  6. OXYBUTIN [Concomitant]
  7. SIMVASTATIN [Concomitant]
  8. OMEPRAZOLE [Concomitant]
  9. METOPROLOL [Concomitant]

REACTIONS (1)
  - RECTAL HAEMORRHAGE [None]
